FAERS Safety Report 24713215 (Version 1)
Quarter: 2024Q4

REPORT INFORMATION
  Report Type: Spontaneous
  Country: US (occurrence: None)
  Receive Date: 20241209
  Receipt Date: 20241209
  Transmission Date: 20250115
  Serious: No
  Sender: Public
  Company Number: None

PATIENT
  Age: 65 Year
  Sex: Female
  Weight: 69.3 kg

DRUGS (13)
  1. SKYRIZI [Suspect]
     Active Substance: RISANKIZUMAB-RZAA
     Indication: Crohn^s disease
     Dosage: OTHER QUANTITY : 1 INJECTION(S);?OTHER FREQUENCY : EVERY 2 MONTHS;?OTHER ROUTE : INJECTED UNDER SKIN
     Route: 058
     Dates: start: 20240910
  2. Entocort oral, [Concomitant]
  3. OMEPRAZOLE [Concomitant]
     Active Substance: OMEPRAZOLE
  4. januvia, [Concomitant]
  5. crestor, [Concomitant]
  6. LOSARTAN [Concomitant]
     Active Substance: LOSARTAN
  7. iron, [Concomitant]
  8. multivitamin, [Concomitant]
  9. vitamin D, [Concomitant]
  10. .calcium [Concomitant]
  11. b12, [Concomitant]
  12. b6, [Concomitant]
  13. FOLATE SODIUM [Concomitant]
     Active Substance: FOLATE SODIUM

REACTIONS (1)
  - Migraine [None]

NARRATIVE: CASE EVENT DATE: 20241105
